FAERS Safety Report 6504703-4 (Version None)
Quarter: 2009Q4

REPORT INFORMATION
  Report Type: 
  Country: None (occurrence: None)
  Receive Date: 20091218
  Receipt Date: 20090923
  Transmission Date: 20100525
  Serious: No
  Sender: FDA-Public Use
  Company Number: A0808673A

PATIENT
  Age: 62 Year
  Sex: Male

DRUGS (11)
  1. PROMACTA [Suspect]
     Indication: IDIOPATHIC THROMBOCYTOPENIC PURPURA
     Dosage: 50MG PER DAY
     Route: 048
     Dates: start: 20090912
  2. NEURONTIN [Concomitant]
  3. FOLIC ACID [Concomitant]
  4. UNKNOWN [Concomitant]
  5. DEXAMETHASONE TAB [Concomitant]
  6. POTASSIUM [Concomitant]
  7. PHOSPHORUS [Concomitant]
  8. ACYCLOVIR [Concomitant]
  9. CALCIUM [Concomitant]
  10. UNKNOWN [Concomitant]
  11. PROCRIT [Concomitant]

REACTIONS (1)
  - DRUG INEFFECTIVE [None]
